FAERS Safety Report 5718764-3 (Version None)
Quarter: 2008Q2

REPORT INFORMATION
  Report Type: 
  Country: None (occurrence: None)
  Receive Date: 20080425
  Receipt Date: 20080417
  Transmission Date: 20081010
  Serious: Yes (Other)
  Sender: FDA-Public Use
  Company Number: PHNU2008DE01607

PATIENT
  Sex: Female

DRUGS (4)
  1. RASILEZ [Suspect]
     Dosage: UNK, UNK
     Dates: start: 20080411
  2. DIURETICS [Suspect]
  3. FUROSEMIDE [Suspect]
  4. ACE INHIBITOR NOS [Suspect]

REACTIONS (1)
  - BLOOD UREA INCREASED [None]
